FAERS Safety Report 7605148 (Version 2)
Quarter: 2012Q4

REPORT INFORMATION
  Report Type: 
  Country: US (occurrence: US)
  Receive Date: 20100924
  Receipt Date: 20120905
  Transmission Date: 20130627
  Serious: Yes (Death)
  Sender: FDA-Public Use
  Company Number: US-MYLANLABS-2010S1016844

PATIENT
  Age: 39 Year
  Sex: Male
  Weight: 105.69 kg

DRUGS (6)
  1. FENTANYL TRANSDERMAL SYSTEM [Suspect]
     Indication: BACK PAIN
     Dosage: q 48hrs
     Route: 062
     Dates: end: 20080923
  2. OXYCODONE [Concomitant]
  3. VALTREX [Concomitant]
  4. OXYCODONE AND ACETAMINOPHEN [Concomitant]
  5. HYDROCODONE BITARTRATE AND ACETAMINOPHEN [Concomitant]
  6. TIZANIDINE [Concomitant]

REACTIONS (2)
  - Toxicity to various agents [Fatal]
  - Overdose [Fatal]
